FAERS Safety Report 7421009-X (Version None)
Quarter: 2011Q2

REPORT INFORMATION
  Report Type: 
  Country: None (occurrence: None)
  Receive Date: 20110418
  Receipt Date: 20110414
  Transmission Date: 20111010
  Serious: Yes (Death, Other)
  Sender: FDA-Public Use
  Company Number: PHHY2011CH31175

PATIENT
  Age: 57 Year
  Sex: Female

DRUGS (4)
  1. CYCLOSPORINE [Suspect]
     Indication: IMMUNOSUPPRESSION
  2. THYMOGLOBULIN [Suspect]
     Indication: IMMUNOSUPPRESSION
  3. PREDNISONE [Suspect]
     Indication: IMMUNOSUPPRESSION
  4. MYCOPHENOLATE MOFETIL [Suspect]
     Indication: IMMUNOSUPPRESSION

REACTIONS (11)
  - SHOCK [None]
  - AMERICAN TRYPANOSOMIASIS [None]
  - GENERAL PHYSICAL CONDITION ABNORMAL [None]
  - SUBCUTANEOUS NODULE [None]
  - MULTI-ORGAN FAILURE [None]
  - SERRATIA INFECTION [None]
  - SKIN LESION [None]
  - HISTIOCYTOSIS HAEMATOPHAGIC [None]
  - PANNICULITIS [None]
  - DERMATITIS BULLOUS [None]
  - TRANSPLANT REJECTION [None]
